FAERS Safety Report 17038258 (Version 7)
Quarter: 2023Q1

REPORT INFORMATION
  Report Type: Spontaneous
  Country: US (occurrence: None)
  Receive Date: 20191115
  Receipt Date: 20230202
  Transmission Date: 20230418
  Serious: Yes (Hospitalization, Other)
  Sender: FDA-Public Use
  Company Number: 2019SF60246

PATIENT
  Age: 21911 Day
  Sex: Female

DRUGS (111)
  1. FARXIGA [Suspect]
     Active Substance: DAPAGLIFLOZIN PROPANEDIOL
     Indication: Type 2 diabetes mellitus
     Route: 048
     Dates: start: 201705, end: 201801
  2. FARXIGA [Suspect]
     Active Substance: DAPAGLIFLOZIN PROPANEDIOL
     Indication: Weight decreased
     Route: 048
     Dates: start: 201705, end: 201801
  3. FARXIGA [Suspect]
     Active Substance: DAPAGLIFLOZIN PROPANEDIOL
     Indication: Blood pressure decreased
     Route: 048
     Dates: start: 201705, end: 201801
  4. LORTAB [Concomitant]
     Active Substance: ACETAMINOPHEN\HYDROCODONE BITARTRATE
  5. TYLENOL [Concomitant]
     Active Substance: ACETAMINOPHEN
  6. MORPHINE [Concomitant]
     Active Substance: MORPHINE
  7. SUCCINYLCHOLINE [Concomitant]
     Active Substance: SUCCINYLCHOLINE
  8. PROPOFOL [Concomitant]
     Active Substance: PROPOFOL
  9. LIDOCAINE [Concomitant]
     Active Substance: LIDOCAINE
  10. FENTANYL [Concomitant]
     Active Substance: FENTANYL
  11. PHENYLEPHRINE [Concomitant]
     Active Substance: PHENYLEPHRINE HYDROCHLORIDE
  12. ROCURONIUM [Concomitant]
     Active Substance: ROCURONIUM BROMIDE
  13. ISOFLURANE [Concomitant]
     Active Substance: ISOFLURANE
  14. VECURONIUM [Concomitant]
     Active Substance: VECURONIUM BROMIDE
  15. LEVEMIR [Concomitant]
     Active Substance: INSULIN DETEMIR
  16. VASOPRESSIN [Concomitant]
     Active Substance: VASOPRESSIN
  17. NOREPINEPHRINE [Concomitant]
     Active Substance: NOREPINEPHRINE
  18. GLUCAGON [Concomitant]
     Active Substance: GLUCAGON
  19. VANCOMYCIN [Concomitant]
     Active Substance: VANCOMYCIN
  20. SENNA [Concomitant]
     Active Substance: SENNA LEAF\SENNOSIDES\SENNOSIDES A AND B
  21. HEPARIN [Concomitant]
     Active Substance: HEPARIN SODIUM
  22. MIDAZOLAM [Concomitant]
     Active Substance: MIDAZOLAM
  23. PROTONIX [Concomitant]
     Active Substance: PANTOPRAZOLE SODIUM
  24. DUONEB [Concomitant]
     Active Substance: ALBUTEROL SULFATE\IPRATROPIUM BROMIDE
  25. ZOSYN [Concomitant]
     Active Substance: PIPERACILLIN SODIUM\TAZOBACTAM SODIUM
  26. SEVOFLURANE [Concomitant]
     Active Substance: SEVOFLURANE
  27. NORVASC [Concomitant]
     Active Substance: AMLODIPINE BESYLATE
  28. HYDRALAZINE [Concomitant]
     Active Substance: HYDRALAZINE HYDROCHLORIDE
  29. METOPROLOL TARTRATE [Concomitant]
     Active Substance: METOPROLOL TARTRATE
  30. MEROPENEM [Concomitant]
     Active Substance: MEROPENEM
  31. ZYVOX [Concomitant]
     Active Substance: LINEZOLID
  32. ZOLOFT [Concomitant]
     Active Substance: SERTRALINE HYDROCHLORIDE
  33. NYSTATIN [Concomitant]
     Active Substance: NYSTATIN
  34. DULAGLUTIDE [Concomitant]
     Active Substance: DULAGLUTIDE
  35. JANUVIA [Concomitant]
     Active Substance: SITAGLIPTIN PHOSPHATE
  36. OMEPRAZOLE [Concomitant]
     Active Substance: OMEPRAZOLE
     Indication: Dyspepsia
     Dosage: 40 MG:
     Dates: start: 2010
  37. ONDANSETRON [Concomitant]
     Active Substance: ONDANSETRON
  38. POLYETHYLENE GLYCOL [Concomitant]
     Active Substance: POLYETHYLENE GLYCOL
  39. SODIUM CHLORIDE [Concomitant]
     Active Substance: SODIUM CHLORIDE
  40. LACTATED RINGERS SOLUTION [Concomitant]
     Active Substance: CALCIUM CHLORIDE\POTASSIUM CHLORIDE\SODIUM CHLORIDE\SODIUM LACTATE
  41. LACTATE [Concomitant]
  42. CALCIUM CARBONATE [Concomitant]
     Active Substance: CALCIUM CARBONATE
  43. SODIUM BICARBONATE [Concomitant]
     Active Substance: SODIUM BICARBONATE
  44. MAGNESIUM [Concomitant]
     Active Substance: MAGNESIUM
  45. FUROSEMIDE [Concomitant]
     Active Substance: FUROSEMIDE
  46. GLUCONATE [Concomitant]
  47. HYDROMORPHONE [Concomitant]
     Active Substance: HYDROMORPHONE
  48. PHOSPHORUS [Concomitant]
     Active Substance: PHOSPHORUS
  49. FLUCONAZOLE [Concomitant]
     Active Substance: FLUCONAZOLE
  50. GLYCOPYRROLATE [Concomitant]
     Active Substance: GLYCOPYRROLATE
  51. CLINDAMYCIN [Concomitant]
     Active Substance: CLINDAMYCIN
  52. OXYCODONE-ACETAMIIN [Concomitant]
  53. ERTAPENEM [Concomitant]
     Active Substance: ERTAPENEM
  54. METRONIDAZOILE [Concomitant]
  55. FLUNISOLDE [Concomitant]
  56. CEFAZOLIN [Concomitant]
     Active Substance: CEFAZOLIN
  57. GABAPENTIN [Concomitant]
     Active Substance: GABAPENTIN
  58. DESFLURANE [Concomitant]
     Active Substance: DESFLURANE
  59. EPHEDRINE [Concomitant]
     Active Substance: EPHEDRINE
  60. TROPONIN [Concomitant]
  61. SUGAMMADEX [Concomitant]
     Active Substance: SUGAMMADEX
  62. NITROGLYCERIN [Concomitant]
     Active Substance: NITROGLYCERIN
  63. METOCLOPRAMIDE [Concomitant]
     Active Substance: METOCLOPRAMIDE
  64. LISINOPRIL [Concomitant]
     Active Substance: LISINOPRIL
  65. METFORMIN HYDROCHLORIDE [Concomitant]
     Active Substance: METFORMIN HYDROCHLORIDE
  66. LOSARTAN POTASSIUM [Concomitant]
     Active Substance: LOSARTAN POTASSIUM
  67. AMOXICILLIN\CLAVULANATE POTASSIUM [Concomitant]
     Active Substance: AMOXICILLIN\CLAVULANATE POTASSIUM
  68. DICLOFENAC SODIUM [Concomitant]
     Active Substance: DICLOFENAC SODIUM
  69. DOXYCYCLINE HYCLATE [Concomitant]
     Active Substance: DOXYCYCLINE HYCLATE
  70. MUPIROCIN [Concomitant]
     Active Substance: MUPIROCIN
  71. CEFDINIR [Concomitant]
     Active Substance: CEFDINIR
  72. AZITHROMYCIN [Concomitant]
     Active Substance: AZITHROMYCIN
  73. LEVOCETIRIZINE [Concomitant]
     Active Substance: LEVOCETIRIZINE
  74. HYDROXYZINE HYDROCHLORIDE [Concomitant]
     Active Substance: HYDROXYZINE HYDROCHLORIDE
  75. PIOGLITAZONE [Concomitant]
     Active Substance: PIOGLITAZONE
  76. ATORVASTATIN [Concomitant]
     Active Substance: ATORVASTATIN
  77. ISOSORBIDE MONONITRATE [Concomitant]
     Active Substance: ISOSORBIDE MONONITRATE
  78. PROMETHAZINE [Concomitant]
     Active Substance: PROMETHAZINE HYDROCHLORIDE
  79. ASPIRIN [Concomitant]
     Active Substance: ASPIRIN
  80. TRESIBA [Concomitant]
     Active Substance: INSULIN DEGLUDEC
  81. WELLBUTRIN [Concomitant]
     Active Substance: BUPROPION HYDROCHLORIDE
  82. ONGLYZA [Concomitant]
     Active Substance: SAXAGLIPTIN HYDROCHLORIDE
     Indication: Diabetes mellitus
  83. NEOSPORIN [Concomitant]
     Active Substance: BACITRACIN ZINC\NEOMYCIN SULFATE\POLYMYXIN B SULFATE
  84. TRIAMCINOLONE [Concomitant]
     Active Substance: TRIAMCINOLONE
  85. DOCUSATE [Concomitant]
     Active Substance: DOCUSATE
  86. CITALOPRAM [Concomitant]
     Active Substance: CITALOPRAM HYDROBROMIDE
  87. VITAMIN D2 [Concomitant]
     Active Substance: ERGOCALCIFEROL
  88. TRADJENTA [Concomitant]
     Active Substance: LINAGLIPTIN
  89. PHENOBARBITAL [Concomitant]
     Active Substance: PHENOBARBITAL
     Dates: start: 20120220
  90. ATROPINE SULFATE [Concomitant]
     Active Substance: ATROPINE SULFATE
     Dates: start: 20120220
  91. SCOPOLAMINE HYDROBROMIDE [Concomitant]
     Active Substance: SCOPOLAMINE HYDROBROMIDE
     Dates: start: 20120220
  92. ZOCOR [Concomitant]
     Active Substance: SIMVASTATIN
     Dates: start: 20120228
  93. NEXIUM [Concomitant]
     Active Substance: ESOMEPRAZOLE MAGNESIUM
  94. VICTOZA [Concomitant]
     Active Substance: LIRAGLUTIDE
  95. CINNAMON [Concomitant]
     Active Substance: CINNAMON
  96. FISH OIL [Concomitant]
     Active Substance: FISH OIL
  97. HYDROCHLOROTHIAZIDE [Concomitant]
     Active Substance: HYDROCHLOROTHIAZIDE
  98. ACYCLOVIR [Concomitant]
     Active Substance: ACYCLOVIR
     Route: 048
  99. CEPHALEXIN [Concomitant]
     Active Substance: CEPHALEXIN
  100. BASAGLAR [Concomitant]
     Active Substance: INSULIN GLARGINE
  101. BUSPIRONE [Concomitant]
     Active Substance: BUSPIRONE HYDROCHLORIDE
  102. TRULICITY [Concomitant]
     Active Substance: DULAGLUTIDE
     Indication: Diabetes mellitus
  103. VALSARTAN [Concomitant]
     Active Substance: VALSARTAN
     Indication: Hypertension
     Dosage: 160 MG:
     Dates: start: 2021
  104. ATORVASTATIN [Concomitant]
     Active Substance: ATORVASTATIN
     Indication: Blood cholesterol increased
     Dosage: 20 MG:
     Dates: start: 2018
  105. SYNTHROID [Concomitant]
     Active Substance: LEVOTHYROXINE SODIUM
     Indication: Iodine uptake increased
     Dates: start: 2022
  106. BUSPIRONE [Concomitant]
     Active Substance: BUSPIRONE HYDROCHLORIDE
     Indication: Anxiety
     Dates: start: 2006
  107. METOPROLOL [Concomitant]
     Active Substance: METOPROLOL
     Indication: Hypertension
     Dates: start: 2022
  108. HUMALOG [Concomitant]
     Active Substance: INSULIN LISPRO
     Indication: Diabetes mellitus
     Dosage: QUICK PEN, CURRENT MEDICATION
  109. LINZESS [Concomitant]
     Active Substance: LINACLOTIDE
     Indication: Constipation
     Dates: start: 2022
  110. TAMOXIFEN [Concomitant]
     Active Substance: TAMOXIFEN
     Dates: start: 202106
  111. ACTOS [Concomitant]
     Active Substance: PIOGLITAZONE HYDROCHLORIDE
     Dates: start: 202106

REACTIONS (16)
  - Fournier^s gangrene [Unknown]
  - Sepsis [Unknown]
  - Abscess limb [Unknown]
  - Perineal abscess [Unknown]
  - Perirectal abscess [Unknown]
  - Genital abscess [Unknown]
  - Anal abscess [Unknown]
  - Acute kidney injury [Unknown]
  - Renal tubular necrosis [Unknown]
  - Necrotising soft tissue infection [Unknown]
  - Renal failure [Unknown]
  - Chronic kidney disease [Unknown]
  - Cholecystitis acute [Unknown]
  - Cholecystitis infective [Unknown]
  - Urinary tract infection [Unknown]
  - Anxiety [Unknown]

NARRATIVE: CASE EVENT DATE: 20180112
